FAERS Safety Report 9491665 (Version 1)
Quarter: 2013Q1

REPORT INFORMATION
  Report Type: Not Available
  Country: US (occurrence: US)
  Receive Date: 20121219
  Receipt Date: 20121219
  Transmission Date: 20140127
  Serious: Yes (Hospitalization)
  Sender: FDA-Public Use
  Company Number: US-LUNDBECK-DKLU1084866

PATIENT
  Age: 5 None
  Sex: Male

DRUGS (4)
  1. ONFI [Suspect]
     Indication: EPILEPSY
     Dates: start: 20120830
  2. ONFI [Suspect]
     Dates: start: 20120830
  3. DEPAKOTE [Concomitant]
     Indication: PRODUCT USED FOR UNKNOWN INDICATION
  4. ZONEGRAN [Concomitant]
     Indication: PRODUCT USED FOR UNKNOWN INDICATION
     Dates: end: 20120925

REACTIONS (3)
  - Convulsion [Unknown]
  - Somnolence [Unknown]
  - Tremor [Unknown]
